FAERS Safety Report 6702843-8 (Version None)
Quarter: 2010Q2

REPORT INFORMATION
  Report Type: 
  Country: None (occurrence: None)
  Receive Date: 20100429
  Receipt Date: 20100419
  Transmission Date: 20101027
  Serious: Yes (Hospitalization)
  Sender: FDA-Public Use
  Company Number: US-ELI_LILLY_AND_COMPANY-US201003008147

PATIENT
  Sex: Female

DRUGS (1)
  1. FORTEO [Suspect]

REACTIONS (5)
  - ARTHRALGIA [None]
  - EXOSTOSIS [None]
  - HYPOAESTHESIA [None]
  - INCISION SITE PAIN [None]
  - PAIN IN EXTREMITY [None]
